FAERS Safety Report 10672518 (Version 2)
Quarter: 2014Q4

REPORT INFORMATION
  Report Type: Not Available
  Country: IT (occurrence: IT)
  Receive Date: 20141223
  Receipt Date: 20141223
  Transmission Date: 20150529
  Serious: Yes (Death, Other)
  Sender: FDA-Public Use
  Company Number: IT-CELGENE-083-C4047-11103073

PATIENT

DRUGS (3)
  1. CC-4047 [Suspect]
     Active Substance: POMALIDOMIDE
     Indication: PLASMA CELL MYELOMA
     Dosage: 4 DOSE LEVEL: 1-1.5-2-2.5 MG/DAY
     Route: 048
  2. CYCLOPHOSPHAMID [Suspect]
     Active Substance: CYCLOPHOSPHAMIDE
     Indication: PLASMA CELL MYELOMA
     Route: 065
  3. PREDNISONE. [Suspect]
     Active Substance: PREDNISONE
     Indication: PLASMA CELL MYELOMA
     Route: 065

REACTIONS (37)
  - Encephalitis [Unknown]
  - Tremor [Unknown]
  - Gastrointestinal disorder [Unknown]
  - Phlebitis [Unknown]
  - Somnolence [Unknown]
  - Neurotoxicity [Unknown]
  - Neuropathy peripheral [Unknown]
  - Peripheral motor neuropathy [Unknown]
  - Confusional state [Unknown]
  - Depressed mood [Unknown]
  - Plasma cell myeloma [Fatal]
  - Myocardial ischaemia [Unknown]
  - Pancreatitis [Unknown]
  - Rash [Unknown]
  - Skin toxicity [Unknown]
  - Upper respiratory tract infection [Unknown]
  - Pyrexia [Unknown]
  - Bradycardia [Unknown]
  - Neuralgia [Unknown]
  - Diarrhoea [Unknown]
  - Vomiting [Unknown]
  - Infection [Unknown]
  - Pulmonary embolism [Unknown]
  - Embolism [Unknown]
  - Neutropenia [Unknown]
  - Constipation [Unknown]
  - Nausea [Unknown]
  - Thrombocytopenia [Unknown]
  - Anaemia [Unknown]
  - Fatigue [Unknown]
  - Weight increased [Unknown]
  - Dyspnoea [Unknown]
  - Arrhythmia [Unknown]
  - Deep vein thrombosis [Unknown]
  - Vertigo [Unknown]
  - Peripheral sensory neuropathy [Unknown]
  - Transaminases increased [Unknown]
